FAERS Safety Report 14156292 (Version 2)
Quarter: 2017Q4

REPORT INFORMATION
  Report Type: Spontaneous
  Country: US (occurrence: US)
  Receive Date: 20171103
  Receipt Date: 20171107
  Transmission Date: 20180321
  Serious: No
  Sender: FDA-Public Use
  Company Number: US-PFIZER INC-2017470001

PATIENT
  Age: 68 Year
  Sex: Female
  Weight: 44 kg

DRUGS (8)
  1. DISOPYRAMIDE PHOSPHATE. [Suspect]
     Active Substance: DISOPYRAMIDE PHOSPHATE
     Indication: LOWN-GANONG-LEVINE SYNDROME
     Dosage: 100 MG, 4X/DAY
  2. NADOLOL. [Concomitant]
     Active Substance: NADOLOL
     Indication: CHEST DISCOMFORT
     Dosage: 100 MG, AS NEEDED
  3. DISOPYRAMIDE PHOSPHATE. [Suspect]
     Active Substance: DISOPYRAMIDE PHOSPHATE
     Dosage: 100 MG, 1X/DAY
  4. DISOPYRAMIDE PHOSPHATE. [Suspect]
     Active Substance: DISOPYRAMIDE PHOSPHATE
     Dosage: 100 MG, 2X/DAY
  5. LEVOTHYROXINE. [Concomitant]
     Active Substance: LEVOTHYROXINE
     Indication: THYROID DISORDER
     Dosage: 50 UG, 1X/DAY
  6. ALBUTEROL. [Concomitant]
     Active Substance: ALBUTEROL
     Indication: ASTHMA
     Dosage: UNK UNK, AS NEEDED
  7. DISOPYRAMIDE PHOSPHATE. [Suspect]
     Active Substance: DISOPYRAMIDE PHOSPHATE
     Indication: ARRHYTHMIA
     Dosage: 100 MG, 3X/DAY
  8. FURASEPTIC [Concomitant]
     Indication: BACK PAIN
     Dosage: 2, EVERY 4-6 HOURS AS NEEDED

REACTIONS (9)
  - Eating disorder [Recovering/Resolving]
  - Feeling abnormal [Recovering/Resolving]
  - Lacrimation increased [Recovering/Resolving]
  - Chest discomfort [Recovering/Resolving]
  - Blood glucose decreased [Recovering/Resolving]
  - Eye disorder [Recovering/Resolving]
  - Asthenia [Recovering/Resolving]
  - Vision blurred [Recovering/Resolving]
  - Tremor [Recovering/Resolving]

NARRATIVE: CASE EVENT DATE: 2016
